FAERS Safety Report 23661317 (Version 1)
Quarter: 2024Q1

REPORT INFORMATION
  Report Type: Report from Study
  Country: US (occurrence: None)
  Receive Date: 20240322
  Receipt Date: 20240322
  Transmission Date: 20240410
  Serious: Yes (Hospitalization)
  Sender: FDA-Public Use
  Company Number: 2024A065048

PATIENT
  Age: 31956 Day
  Sex: Male
  Weight: 71.2 kg

DRUGS (1)
  1. CALQUENCE [Suspect]
     Active Substance: ACALABRUTINIB
     Indication: Chronic lymphocytic leukaemia
     Route: 048
     Dates: end: 20240315

REACTIONS (2)
  - Haemoglobin decreased [Unknown]
  - Iron deficiency [Unknown]

NARRATIVE: CASE EVENT DATE: 20240315
